FAERS Safety Report 7526862-7 (Version None)
Quarter: 2011Q2

REPORT INFORMATION
  Report Type: 
  Country: None (occurrence: None)
  Receive Date: 20110606
  Receipt Date: 20110525
  Transmission Date: 20111010
  Serious: Yes (Other)
  Sender: FDA-Public Use
  Company Number: PHHO2011FR00975

PATIENT
  Sex: Male
  Weight: 86 kg

DRUGS (10)
  1. OMEPRAZOLE [Concomitant]
     Indication: GASTROOESOPHAGEAL REFLUX DISEASE
  2. VOLTAREN [Concomitant]
  3. CORGARD [Concomitant]
  4. TRAMADOL HCL [Concomitant]
     Indication: BONE PAIN
  5. LERCANIDIPINE [Concomitant]
     Indication: HYPERTENSION
  6. ECONAZOLE NITRATE [Concomitant]
  7. EVEROLIMUS [Suspect]
     Dosage: CODE NOT BROKEN
     Dates: start: 20110121
  8. MODAMIDE [Concomitant]
     Indication: HYPERTENSION
  9. EVEROLIMUS [Suspect]
     Indication: HEPATIC NEOPLASM MALIGNANT
     Dosage: CODE NOT BROKEN
     Route: 048
     Dates: start: 20101209, end: 20110112
  10. LOCACID [Concomitant]
     Indication: RASH ERYTHEMATOUS

REACTIONS (1)
  - NEUTROPENIA [None]
